FAERS Safety Report 11870121 (Version 1)
Quarter: 2015Q4

REPORT INFORMATION
  Report Type: Spontaneous
  Country: US (occurrence: US)
  Receive Date: 20151228
  Receipt Date: 20151228
  Transmission Date: 20160305
  Serious: Yes (Other)
  Sender: FDA-Public Use
  Company Number: US-CIPLA LTD.-2015US09664

PATIENT

DRUGS (9)
  1. OXYTOCIN. [Suspect]
     Active Substance: OXYTOCIN
     Route: 064
  2. PROMETHAZINE [Suspect]
     Active Substance: PROMETHAZINE\PROMETHAZINE HYDROCHLORIDE
     Route: 064
  3. RISPERIDONE. [Suspect]
     Active Substance: RISPERIDONE
     Dosage: 2 MG, QD
     Route: 064
  4. PIPAMPERONE [Suspect]
     Active Substance: PIPAMPERONE
     Route: 064
  5. TRIHEXYPHENIDYL [Suspect]
     Active Substance: TRIHEXYPHENIDYL
     Route: 064
  6. PENTAZOCINE [Suspect]
     Active Substance: PENTAZOCINE
     Route: 064
  7. METHYLERGOMETRINE [Suspect]
     Active Substance: METHYLERGONOVINE MALEATE
     Route: 064
  8. DIAZEPAM. [Suspect]
     Active Substance: DIAZEPAM
     Route: 064
  9. MEPIVACAINE [Suspect]
     Active Substance: MEPIVACAINE\MEPIVACAINE HYDROCHLORIDE
     Route: 064

REACTIONS (3)
  - Foetal exposure during pregnancy [Unknown]
  - Transient tachypnoea of the newborn [Unknown]
  - Maternal drugs affecting foetus [None]
